FAERS Safety Report 19063261 (Version 1)
Quarter: 2021Q1

REPORT INFORMATION
  Report Type: Spontaneous
  Country: FR (occurrence: FR)
  Receive Date: 20210326
  Receipt Date: 20210326
  Transmission Date: 20210420
  Serious: Yes (Life-Threatening)
  Sender: FDA-Public Use
  Company Number: FR-SAMSUNG BIOEPIS-SB-2021-07613

PATIENT
  Age: 45 Year
  Sex: Male
  Weight: 82 kg

DRUGS (1)
  1. FLIXABI [Suspect]
     Active Substance: INFLIXIMAB
     Indication: RHEUMATOID ARTHRITIS
     Route: 042
     Dates: start: 20201021, end: 20201106

REACTIONS (2)
  - Acute respiratory distress syndrome [Recovered/Resolved]
  - Serum sickness-like reaction [Recovered/Resolved]

NARRATIVE: CASE EVENT DATE: 20201106
